FAERS Safety Report 8070530-2 (Version None)
Quarter: 2012Q1

REPORT INFORMATION
  Report Type: 
  Country: None (occurrence: None)
  Receive Date: 20120125
  Receipt Date: 20111214
  Transmission Date: 20120608
  Serious: Yes (Other)
  Sender: FDA-Public Use
  Company Number: PHHY2011JP109802

PATIENT
  Sex: Male

DRUGS (3)
  1. DOCETAXEL [Concomitant]
  2. DEXAMETHASONE [Concomitant]
  3. ZOLEDRONOC ACID [Suspect]
     Indication: METASTASES TO BONE
     Dosage: 4 MG, UNK
     Route: 041

REACTIONS (1)
  - NEUROTOXICITY [None]
